FAERS Safety Report 10551539 (Version 3)
Quarter: 2015Q1

REPORT INFORMATION
  Report Type: Spontaneous
  Country: US (occurrence: US)
  Receive Date: 20141029
  Receipt Date: 20150119
  Transmission Date: 20150720
  Serious: No
  Sender: FDA-Public Use
  Company Number: US-PFIZER INC-2014293644

PATIENT
  Age: 58 Year
  Sex: Male

DRUGS (6)
  1. CIALIS [Concomitant]
     Active Substance: TADALAFIL
     Dosage: 1 DF, UNK (5 MG, ^3X/ML^)
     Dates: start: 2012
  2. PANTOPRAZOLE [Concomitant]
     Active Substance: PANTOPRAZOLE SODIUM
     Dosage: 40 MG, UNK
     Dates: start: 2011
  3. METOPROLOL [Concomitant]
     Active Substance: METOPROLOL
     Dosage: 25 MG, 2X/DAY
     Dates: start: 2011
  4. LISINOPRIL/ HYDROCHLOROTHIAZIDE [Concomitant]
     Dosage: 1 DF, 1X/DAY (10 MG/12.5 MG)
     Dates: start: 2005
  5. ASPIRIN. [Concomitant]
     Active Substance: ASPIRIN
     Dosage: 81 MG, 2X/DAY
  6. LIPITOR [Suspect]
     Active Substance: ATORVASTATIN CALCIUM
     Indication: BLOOD CHOLESTEROL INCREASED
     Dosage: 20 MG, 2X/DAY
     Dates: start: 2001

REACTIONS (2)
  - Chest discomfort [Recovered/Resolved]
  - Heart rate irregular [Recovered/Resolved]
